FAERS Safety Report 17472203 (Version 5)
Quarter: 2020Q4

REPORT INFORMATION
  Report Type: Report from Study
  Country: BR (occurrence: BR)
  Receive Date: 20200228
  Receipt Date: 20201110
  Transmission Date: 20210113
  Serious: Yes (Hospitalization)
  Sender: FDA-Public Use
  Company Number: BR-ROCHE-2549703

PATIENT
  Age: 54 Year
  Sex: Female
  Weight: 55.1 kg

DRUGS (55)
  1. LUFTAL [SIMETICONE] [Concomitant]
     Route: 048
     Dates: start: 20191220
  2. INFLIXIMAB [Concomitant]
     Active Substance: INFLIXIMAB
     Route: 042
     Dates: start: 20200221, end: 20200221
  3. FAMOTIDINE. [Concomitant]
     Active Substance: FAMOTIDINE
     Route: 048
     Dates: start: 20200127, end: 20200127
  4. SCOPOLAMINE BUTYLBROMIDE [Concomitant]
     Active Substance: SCOPOLAMINE
     Route: 042
     Dates: start: 20200215, end: 20200215
  5. OLIMEL [Concomitant]
     Active Substance: AMINO ACIDS\DEXTROSE\SOYBEAN OIL
     Dosage: 1000 ML (MILLILITER; CM3
     Route: 042
     Dates: start: 20200211, end: 20200212
  6. TIORFAN [Concomitant]
     Active Substance: RACECADOTRIL
     Route: 048
     Dates: start: 20200222, end: 20200223
  7. UNIMEDROL [Concomitant]
     Route: 042
     Dates: start: 20200221, end: 20200308
  8. LUFTAL [SIMETICONE] [Concomitant]
     Route: 065
     Dates: start: 20200223, end: 20200309
  9. HIDRION [Concomitant]
     Active Substance: FUROSEMIDE\POTASSIUM CHLORIDE
     Dosage: DOSE: 40 MG/ 100 MG
  10. SMOFKABIVEN [Concomitant]
     Active Substance: AMINO ACIDS\DEXTROSE\ELECTROLYTES NOS\SOYBEAN OIL
     Route: 042
     Dates: start: 20200218, end: 20200302
  11. SLOW K [Concomitant]
     Active Substance: POTASSIUM CHLORIDE
     Route: 048
     Dates: start: 20200303
  12. CLEXANE [Concomitant]
     Active Substance: ENOXAPARIN SODIUM
     Route: 058
     Dates: start: 20200220, end: 20200308
  13. PROBIATOP [Concomitant]
     Route: 048
     Dates: start: 20200216, end: 20200217
  14. ERYTHROMYCIN. [Concomitant]
     Active Substance: ERYTHROMYCIN
     Route: 042
     Dates: start: 20200226, end: 20200307
  15. DOMPERIDONE [Concomitant]
     Active Substance: DOMPERIDONE
     Route: 048
     Dates: start: 20191220
  16. LUFTAL [SIMETICONE] [Concomitant]
     Route: 048
     Dates: start: 20200217, end: 20200218
  17. PERIDAL [DOMPERIDONE] [Concomitant]
     Route: 048
     Dates: start: 20200219, end: 20200219
  18. INFLIXIMAB [Concomitant]
     Active Substance: INFLIXIMAB
     Route: 042
     Dates: start: 20200127, end: 20200127
  19. CLEXANE [Concomitant]
     Active Substance: ENOXAPARIN SODIUM
     Route: 058
     Dates: start: 20200214, end: 20200218
  20. LOSEC [Concomitant]
     Active Substance: OMEPRAZOLE
     Route: 048
     Dates: start: 20200212, end: 20200227
  21. NOVALGINA [Concomitant]
     Active Substance: METAMIZOLE SODIUM
     Route: 042
     Dates: start: 20200227, end: 20200227
  22. PERIDAL [DOMPERIDONE] [Concomitant]
     Route: 048
     Dates: start: 20200211, end: 20200218
  23. ATEZOLIZUMAB. [Suspect]
     Active Substance: ATEZOLIZUMAB
     Indication: RENAL CELL CARCINOMA
     Dosage: DATE OF MOST RECENT DOSE OF BLINDED ATEZOLIZUMAB PRIOR TO ADVERSE EVENT AND SERIOUS ADVERSE ONSET: 1
     Route: 041
     Dates: start: 20181026
  24. DIFENIDRIN [Concomitant]
     Active Substance: DIPHENHYDRAMINE
     Route: 042
     Dates: start: 20200127, end: 20200127
  25. SLOW K [Concomitant]
     Active Substance: POTASSIUM CHLORIDE
     Route: 048
     Dates: start: 20200211, end: 20200212
  26. SLOW K [Concomitant]
     Active Substance: POTASSIUM CHLORIDE
     Route: 048
     Dates: start: 20200214, end: 20200218
  27. CERNE 12 [Concomitant]
     Active Substance: VITAMINS
     Route: 042
     Dates: start: 20200212, end: 20200212
  28. CERNE 12 [Concomitant]
     Active Substance: VITAMINS
     Route: 042
     Dates: start: 20200306, end: 20200307
  29. NOVALGINA [Concomitant]
     Active Substance: METAMIZOLE SODIUM
     Route: 042
     Dates: start: 20200220, end: 20200220
  30. VITAMIN B1 [Concomitant]
     Active Substance: THIAMINE HYDROCHLORIDE
     Route: 042
     Dates: start: 20200215, end: 20200218
  31. OMEPRAZOLE. [Concomitant]
     Active Substance: OMEPRAZOLE
     Route: 048
     Dates: start: 20191220
  32. BROMOPRIDA [Concomitant]
     Route: 042
     Dates: start: 20200224, end: 20200225
  33. METICORTEN [Concomitant]
     Active Substance: PREDNISONE
     Route: 048
     Dates: start: 20200221, end: 20200221
  34. OLIMEL [Concomitant]
     Active Substance: AMINO ACIDS\DEXTROSE\SOYBEAN OIL
     Dosage: 1000 ML (MILLILITER; CM3)
     Route: 042
     Dates: start: 20200302, end: 20200303
  35. TRAMADOL. [Concomitant]
     Active Substance: TRAMADOL
     Route: 042
     Dates: start: 20200216, end: 20200216
  36. BENALET [Concomitant]
     Active Substance: AMMONIUM CHLORIDE\DIPHENHYDRAMINE HYDROCHLORIDE\SODIUM CITRATE
     Dosage: 1 U
     Route: 048
     Dates: start: 20200305, end: 20200309
  37. MYLANTA [Concomitant]
     Active Substance: ALUMINUM HYDROXIDE\DIMETHICONE\MAGNESIUM HYDROXIDE
     Route: 048
     Dates: start: 20200306, end: 20200309
  38. DRAMIN [Concomitant]
     Active Substance: DIMENHYDRINATE
     Route: 042
     Dates: start: 20200218, end: 20200218
  39. DRAMIN [Concomitant]
     Active Substance: DIMENHYDRINATE
     Route: 042
     Dates: start: 20200227, end: 20200227
  40. CERNE 12 [Concomitant]
     Active Substance: VITAMINS
     Route: 042
     Dates: start: 20200213, end: 20200218
  41. CERNE 12 [Concomitant]
     Active Substance: VITAMINS
     Route: 042
     Dates: start: 20200219, end: 20200301
  42. HIDRION [Concomitant]
     Active Substance: FUROSEMIDE\POTASSIUM CHLORIDE
     Route: 048
     Dates: start: 20200211, end: 20200212
  43. NYSTATIN. [Concomitant]
     Active Substance: NYSTATIN
     Dates: start: 20200219, end: 20200303
  44. OLIG TRAT [Concomitant]
     Dosage: 2 ML (MILLILITER; CM3)
     Route: 042
     Dates: start: 20200212, end: 20200301
  45. OLIMEL [Concomitant]
     Active Substance: AMINO ACIDS\DEXTROSE\SOYBEAN OIL
     Dosage: 1000 ML (MILLILITER; CM3)
     Route: 042
     Dates: start: 20200213, end: 20200217
  46. OLIMEL [Concomitant]
     Active Substance: AMINO ACIDS\DEXTROSE\SOYBEAN OIL
     Dosage: 1000 ML (MILLILITER; CM3)
     Route: 042
     Dates: start: 20200304, end: 20200307
  47. PERIDAL [DOMPERIDONE] [Concomitant]
     Route: 048
     Dates: start: 20200220
  48. MAGNESIUM SULFATE. [Concomitant]
     Active Substance: MAGNESIUM SULFATE
     Route: 048
     Dates: start: 20200211, end: 20200212
  49. DIPYRONE [Concomitant]
     Active Substance: DIPYRONE
     Route: 048
     Dates: start: 20190821
  50. PREDNISONE. [Concomitant]
     Active Substance: PREDNISONE
     Route: 048
     Dates: start: 20200309, end: 20200316
  51. LUFTAL [SIMETICONE] [Concomitant]
     Route: 048
     Dates: start: 20200211, end: 20200217
  52. EMAMA [Concomitant]
     Active Substance: .ALPHA.-TOCOPHEROL ACETATE
     Route: 061
     Dates: start: 20200211, end: 20200309
  53. METICORTEN [Concomitant]
     Active Substance: PREDNISONE
     Route: 048
     Dates: start: 20200211, end: 20200219
  54. VITAMIN B1 [Concomitant]
     Active Substance: THIAMINE HYDROCHLORIDE
     Route: 042
     Dates: start: 20200212, end: 20200214
  55. INSULIN [Concomitant]
     Active Substance: INSULIN NOS
     Route: 058
     Dates: start: 20200306, end: 20200306

REACTIONS (1)
  - Malnutrition [Recovered/Resolved]

NARRATIVE: CASE EVENT DATE: 20200207
